FAERS Safety Report 8543598-4 (Version None)
Quarter: 2012Q2

REPORT INFORMATION
  Report Type: 
  Country: None (occurrence: None)
  Receive Date: 20120416
  Receipt Date: 20081216
  Transmission Date: 20120825
  Serious: Yes (Other)
  Sender: FDA-Public Use
  Company Number: PHEH2008US11138

PATIENT
  Sex: Female

DRUGS (4)
  1. COREG [Concomitant]
  2. LASIX [Concomitant]
  3. DIOVAN [Suspect]
     Indication: PULMONARY HYPERTENSION
     Dosage: 80 MG, QHS ; 40 MG, QHS
     Dates: start: 20081201
  4. DIOVAN [Suspect]
     Indication: PULMONARY HYPERTENSION
     Dosage: 80 MG, QHS ; 40 MG, QHS
     Dates: start: 20081201, end: 20081201

REACTIONS (3)
  - CHEST DISCOMFORT [None]
  - HYPOTENSION [None]
  - PRESYNCOPE [None]
